FAERS Safety Report 17108833 (Version 2)
Quarter: 2019Q4

REPORT INFORMATION
  Report Type: Report from Study
  Country: GB (occurrence: GB)
  Receive Date: 20191203
  Receipt Date: 20191220
  Transmission Date: 20200122
  Serious: Yes (Other)
  Sender: FDA-Public Use
  Company Number: GB-TEVA-2019-GB-1146524

PATIENT
  Age: 42 Year

DRUGS (2)
  1. PREDNISOLONE. [Suspect]
     Active Substance: PREDNISOLONE
     Indication: IMMUNODEFICIENCY COMMON VARIABLE
     Route: 065
  2. BUDESONIDE. [Suspect]
     Active Substance: BUDESONIDE
     Indication: IMMUNODEFICIENCY COMMON VARIABLE
     Route: 065

REACTIONS (1)
  - Gastroenteritis norovirus [Recovered/Resolved]
